FAERS Safety Report 13355465 (Version 1)
Quarter: 2017Q1

REPORT INFORMATION
  Report Type: Spontaneous
  Country: DE (occurrence: DE)
  Receive Date: 20170321
  Receipt Date: 20170321
  Transmission Date: 20170429
  Serious: Yes (Other)
  Sender: FDA-Public Use
  Company Number: DE-PFIZER INC-2017114860

PATIENT
  Sex: Female

DRUGS (1)
  1. EXEMESTANE. [Suspect]
     Active Substance: EXEMESTANE
     Indication: METASTASIS
     Dosage: UNK

REACTIONS (2)
  - Second primary malignancy [Unknown]
  - Malignant peritoneal neoplasm [Unknown]

NARRATIVE: CASE EVENT DATE: 201701
